FAERS Safety Report 8986454 (Version 3)
Quarter: 2013Q2

REPORT INFORMATION
  Report Type: Report from Study
  Country: US (occurrence: US)
  Receive Date: 20121227
  Receipt Date: 20130502
  Transmission Date: 20140414
  Serious: Yes (Other)
  Sender: FDA-Public Use
  Company Number: US-BAYER-2012-133466

PATIENT
  Age: 46 Year
  Sex: Male

DRUGS (19)
  1. STIVARGA [Suspect]
     Indication: COLON CANCER
     Dosage: 160 MG, QD
     Route: 048
     Dates: start: 201212, end: 201212
  2. STIVARGA [Suspect]
     Indication: COLON CANCER
     Dosage: 120 MG, QD
     Route: 048
     Dates: start: 201212, end: 20121209
  3. ZOLEDRONIC ACID [Concomitant]
     Dosage: 4
     Dates: start: 20121231, end: 20121231
  4. CALCIUM VIT D [Concomitant]
     Route: 048
  5. CLINDAGEL [Concomitant]
     Route: 061
  6. CYMBALTA [Concomitant]
     Dosage: 60 MG/DAY
     Route: 048
  7. EMLA [Concomitant]
     Dosage: Q 14 DAYS
     Route: 061
  8. FAMOTIDINE [Concomitant]
     Dosage: 20 MG/DAY
     Route: 048
  9. FAMOTIDINE [Concomitant]
     Dosage: 20 MG/DAY PUSH OVER 3 MINUTES FOR 1 DAY
     Route: 042
  10. FAMOTIDINE [Concomitant]
     Dosage: 20 MG, BID
  11. GABAPENTIN [Concomitant]
     Dosage: 600 MG, TID
     Route: 048
  12. HYDROCODONE W/ACETAMINOPHEN [Concomitant]
     Dosage: 1 DF, Q6WK, PRN
  13. IMODIUM A-D [Concomitant]
     Dosage: 1 DF, Q4HR, PRN
     Route: 048
  14. LISINOPRIL [Concomitant]
     Dosage: 30 MG, QD FOR 30 DAYS
     Route: 048
  15. LORAZEPAM [Concomitant]
     Dosage: 2 MG, TID. PRN
  16. MAGNESIUM [Concomitant]
     Dosage: 300 MG, BID
     Route: 048
  17. PROCHLORPERAZINE MALEATE [Concomitant]
     Dosage: 10 MG, Q6WK, PRN
     Route: 048
  18. STRESS B COMPLEX [MINERALS NOS,VITAMINS NOS] [Concomitant]
  19. VITAMIN B6 [Concomitant]
     Dosage: 50 MG, BID
     Route: 048

REACTIONS (14)
  - Liver disorder [Not Recovered/Not Resolved]
  - Blood bilirubin increased [None]
  - Dehydration [None]
  - Diarrhoea [Not Recovered/Not Resolved]
  - Nausea [Not Recovered/Not Resolved]
  - Liver function test abnormal [None]
  - Vomiting [None]
  - Asthenia [None]
  - Depression [None]
  - Decreased appetite [None]
  - Lethargy [None]
  - Rash [None]
  - Jaundice [None]
  - Confusional state [None]
